FAERS Safety Report 8222963-9 (Version None)
Quarter: 2012Q1

REPORT INFORMATION
  Report Type: 
  Country: None (occurrence: None)
  Receive Date: 20120320
  Receipt Date: 20120312
  Transmission Date: 20120608
  Serious: Yes (Hospitalization, Disabling)
  Sender: FDA-Public Use
  Company Number: US-MERCK-1112USA01776

PATIENT
  Age: 47 Year
  Sex: Female
  Weight: 93 kg

DRUGS (15)
  1. FOSAMAX [Suspect]
     Indication: OSTEOPOROSIS
     Route: 048
     Dates: start: 19991123
  2. FOSAMAX [Suspect]
     Route: 048
     Dates: start: 20100101, end: 20110101
  3. ALENDRONATE SODIUM [Suspect]
     Indication: OSTEOPENIA
     Route: 048
     Dates: start: 20080801, end: 20110101
  4. CALCIUM (UNSPECIFIED) [Concomitant]
     Indication: OSTEOPOROSIS
     Route: 065
  5. FOSAMAX [Suspect]
     Route: 048
     Dates: start: 20071121, end: 20100101
  6. FOSAMAX [Suspect]
     Route: 048
     Dates: start: 20100101, end: 20110101
  7. SULFASALAZINE [Concomitant]
     Indication: RHEUMATOID ARTHRITIS
     Route: 065
     Dates: start: 19990101
  8. METHOTREXATE [Concomitant]
     Indication: RHEUMATOID ARTHRITIS
     Route: 065
     Dates: start: 20020101
  9. FOSAMAX [Suspect]
     Indication: OSTEOPENIA
     Route: 048
     Dates: start: 19991123
  10. CORTICOSTEROIDS (UNSPECIFIED) [Concomitant]
     Indication: RHEUMATOID ARTHRITIS
     Route: 051
  11. ALENDRONATE SODIUM [Suspect]
     Indication: OSTEOPOROSIS
     Route: 048
     Dates: start: 20080801, end: 20110101
  12. ENBREL [Concomitant]
     Indication: RHEUMATOID ARTHRITIS
     Route: 065
     Dates: start: 20020101
  13. VITAMIN D (UNSPECIFIED) [Concomitant]
     Indication: OSTEOPOROSIS
     Route: 065
  14. FOSAMAX [Suspect]
     Route: 048
     Dates: start: 20071121, end: 20100101
  15. PREDNISONE [Concomitant]
     Indication: RHEUMATOID ARTHRITIS
     Route: 065

REACTIONS (26)
  - HYPERTENSION [None]
  - DYSPNOEA [None]
  - MEMORY IMPAIRMENT [None]
  - RESTLESS LEGS SYNDROME [None]
  - OSTEONECROSIS [None]
  - FOOT DEFORMITY [None]
  - DEPRESSION [None]
  - DYSPEPSIA [None]
  - FEMUR FRACTURE [None]
  - SMEAR CERVIX ABNORMAL [None]
  - TOOTH DISORDER [None]
  - SYNOVITIS [None]
  - ANXIETY [None]
  - INSOMNIA [None]
  - OFF LABEL USE [None]
  - COUGH [None]
  - LOW TURNOVER OSTEOPATHY [None]
  - OSTEOARTHRITIS [None]
  - CELLULITIS [None]
  - DRUG ADMINISTRATION ERROR [None]
  - CHRONIC OBSTRUCTIVE PULMONARY DISEASE [None]
  - SKELETAL INJURY [None]
  - GLUCOSE TOLERANCE IMPAIRED [None]
  - RHEUMATOID ARTHRITIS [None]
  - PARAESTHESIA [None]
  - FALL [None]
